FAERS Safety Report 13071563 (Version 1)
Quarter: 2016Q4

REPORT INFORMATION
  Report Type: Spontaneous
  Country: US (occurrence: US)
  Receive Date: 20161229
  Receipt Date: 20161229
  Transmission Date: 20170207
  Serious: No
  Sender: FDA-Public Use
  Company Number: US-PFIZER INC-2016602233

PATIENT
  Age: 18 Year
  Sex: Male
  Weight: 104 kg

DRUGS (1)
  1. DILANTIN [Suspect]
     Active Substance: PHENYTOIN
     Indication: EPILEPSY
     Dosage: 5 DF, DAILY; 2 IN THE AM AND 3 IN THE PM
     Route: 048
     Dates: start: 2015

REACTIONS (2)
  - Tooth loss [Unknown]
  - Tooth disorder [Unknown]

NARRATIVE: CASE EVENT DATE: 2015
